FAERS Safety Report 6051601-9 (Version None)
Quarter: 2009Q1

REPORT INFORMATION
  Report Type: 
  Country: None (occurrence: None)
  Receive Date: 20090126
  Receipt Date: 20090113
  Transmission Date: 20090719
  Serious: Yes (Death)
  Sender: FDA-Public Use
  Company Number: DK-MERCK-0901USA02977

PATIENT
  Age: 59 Year
  Sex: Female

DRUGS (3)
  1. CANCIDAS [Suspect]
     Indication: CANDIDIASIS
     Route: 065
  2. ANTIMICROBIAL (UNSPECIFIED) [Concomitant]
     Route: 065
  3. FLUCONAZOLE [Concomitant]
     Indication: EVIDENCE BASED TREATMENT
     Route: 065

REACTIONS (16)
  - BLOOD LACTIC ACID INCREASED [None]
  - BRONCHOPULMONARY ASPERGILLOSIS [None]
  - C-REACTIVE PROTEIN INCREASED [None]
  - DRUG INEFFECTIVE [None]
  - GASTROINTESTINAL OEDEMA [None]
  - HEPATIC INFECTION FUNGAL [None]
  - ILEAL PERFORATION [None]
  - INTESTINAL FISTULA [None]
  - LIVER ABSCESS [None]
  - LUNG ABSCESS [None]
  - MULTI-ORGAN FAILURE [None]
  - NECROSIS [None]
  - PERITONITIS [None]
  - RENAL ABSCESS [None]
  - RETROPERITONEAL ABSCESS [None]
  - WHITE BLOOD CELL COUNT INCREASED [None]
